FAERS Safety Report 17755137 (Version 8)
Quarter: 2021Q4

REPORT INFORMATION
  Report Type: Spontaneous
  Country: US (occurrence: US)
  Receive Date: 20200507
  Receipt Date: 20211124
  Transmission Date: 20220303
  Serious: Yes (Hospitalization, Other)
  Sender: FDA-Public Use
  Company Number: US-GILEAD-2020-0464469

PATIENT
  Age: 39 Year
  Sex: Male
  Weight: 99.773 kg

DRUGS (83)
  1. TRUVADA [Suspect]
     Active Substance: EMTRICITABINE\TENOFOVIR DISOPROXIL FUMARATE
     Indication: HIV infection
     Dosage: UNK
     Route: 048
     Dates: start: 200511, end: 20080703
  2. TRUVADA [Suspect]
     Active Substance: EMTRICITABINE\TENOFOVIR DISOPROXIL FUMARATE
     Indication: Hepatitis B
     Dosage: UNK
     Route: 048
     Dates: start: 200807, end: 201406
  3. ATRIPLA [Suspect]
     Active Substance: EFAVIRENZ\EMTRICITABINE\TENOFOVIR DISOPROXIL FUMARATE
     Indication: HIV infection
     Dosage: UNK
     Route: 048
     Dates: start: 20080703, end: 20140624
  4. ATRIPLA [Suspect]
     Active Substance: EFAVIRENZ\EMTRICITABINE\TENOFOVIR DISOPROXIL FUMARATE
     Indication: Hepatitis B
  5. ACETAMINOPHEN [Concomitant]
     Active Substance: ACETAMINOPHEN
     Dosage: UNK
     Route: 065
     Dates: start: 201205
  6. ACYCLOVIR [Concomitant]
     Active Substance: ACYCLOVIR
     Dosage: UNK
     Route: 065
     Dates: start: 201204
  7. AMITRIPTYLINE [Concomitant]
     Active Substance: AMITRIPTYLINE
     Dosage: UNK
     Route: 065
     Dates: start: 1996, end: 1996
  8. ASPIRIN [Concomitant]
     Active Substance: ASPIRIN
     Dosage: UNK
     Route: 065
     Dates: start: 20190207
  9. ATORVASTATIN [Concomitant]
     Active Substance: ATORVASTATIN
     Dosage: UNK
     Route: 065
     Dates: start: 2016
  10. BACTRIM [Concomitant]
     Active Substance: SULFAMETHOXAZOLE\TRIMETHOPRIM
     Dosage: UNK
     Route: 065
     Dates: start: 1994, end: 1999
  11. CIMETIDINE [Concomitant]
     Active Substance: CIMETIDINE
  12. CORTISONE [Concomitant]
     Active Substance: CORTISONE
  13. DEPAKOTE [Concomitant]
     Active Substance: DIVALPROEX SODIUM
     Dosage: UNK
     Route: 065
     Dates: start: 201208, end: 2018
  14. DEPAKOTE [Concomitant]
     Active Substance: DIVALPROEX SODIUM
     Dosage: UNK
     Route: 065
     Dates: start: 201204, end: 201208
  15. DEPAKOTE [Concomitant]
     Active Substance: DIVALPROEX SODIUM
     Dosage: UNK
     Route: 065
     Dates: start: 20180427, end: 201812
  16. DEPAKOTE [Concomitant]
     Active Substance: DIVALPROEX SODIUM
     Dosage: UNK
     Route: 065
     Dates: start: 201812
  17. ESOMEPRAZOLE [Concomitant]
     Active Substance: ESOMEPRAZOLE
  18. FAMOTIDINE [Concomitant]
     Active Substance: FAMOTIDINE
  19. MORNIFLUMATE [Concomitant]
     Active Substance: MORNIFLUMATE
     Dosage: UNK
     Route: 065
     Dates: start: 201704, end: 201710
  20. MORNIFLUMATE [Concomitant]
     Active Substance: MORNIFLUMATE
     Dosage: UNK
     Route: 065
     Dates: start: 201711, end: 201809
  21. MORNIFLUMATE [Concomitant]
     Active Substance: MORNIFLUMATE
     Dosage: UNK
     Route: 065
     Dates: start: 201811
  22. HEPARIN [Concomitant]
     Active Substance: HEPARIN SODIUM
     Dosage: UNK
     Route: 065
     Dates: start: 2016, end: 2019
  23. INDINAVIR [Concomitant]
     Active Substance: INDINAVIR
     Dosage: UNK
     Route: 065
     Dates: start: 1996, end: 1998
  24. LANSOPRAZOLE [Concomitant]
     Active Substance: LANSOPRAZOLE
  25. LITHIUM [Concomitant]
     Active Substance: LITHIUM
  26. OMEPRAZOLE [Concomitant]
     Active Substance: OMEPRAZOLE
     Dosage: UNK
     Route: 065
     Dates: start: 1998
  27. PREDNISONE [Concomitant]
     Active Substance: PREDNISONE
     Dosage: UNK
     Route: 065
     Dates: start: 20160130, end: 201802
  28. PREDNISONE [Concomitant]
     Active Substance: PREDNISONE
     Dosage: UNK
     Route: 065
     Dates: start: 20190207, end: 20190211
  29. PREDNISONE [Concomitant]
     Active Substance: PREDNISONE
     Dosage: UNK
     Route: 065
     Dates: start: 20190213, end: 20190305
  30. PREDNISONE [Concomitant]
     Active Substance: PREDNISONE
     Dosage: UNK
     Route: 065
     Dates: start: 20190404, end: 20190408
  31. PREDNISONE [Concomitant]
     Active Substance: PREDNISONE
     Dosage: UNK
     Route: 065
     Dates: start: 20190729, end: 20190802
  32. TRIAMCINOLONE [Concomitant]
     Active Substance: TRIAMCINOLONE
  33. VANCOMYCIN [Concomitant]
     Active Substance: VANCOMYCIN
     Dosage: UNK
     Route: 065
     Dates: start: 20160301, end: 201604
  34. CRIXIVAN [Concomitant]
     Active Substance: INDINAVIR SULFATE
     Indication: HIV infection
     Dosage: UNK
     Route: 065
     Dates: start: 1996, end: 1998
  35. EPIVIR [Concomitant]
     Active Substance: LAMIVUDINE
     Dosage: UNK
     Dates: start: 20140624, end: 201410
  36. INTELENCE [Concomitant]
     Active Substance: ETRAVIRINE
     Dosage: UNK
     Route: 065
     Dates: start: 20140624, end: 201505
  37. INTELENCE [Concomitant]
     Active Substance: ETRAVIRINE
     Dosage: UNK
     Route: 065
     Dates: start: 201505, end: 201512
  38. INTELENCE [Concomitant]
     Active Substance: ETRAVIRINE
     Dosage: UNK
     Route: 065
     Dates: start: 201601
  39. INVIRASE [Concomitant]
     Active Substance: SAQUINAVIR MESYLATE
     Indication: HIV infection
     Dosage: UNK
     Route: 065
     Dates: start: 1996, end: 1998
  40. NORVIR [Concomitant]
     Active Substance: RITONAVIR
     Indication: HIV infection
     Dosage: UNK
     Route: 065
     Dates: start: 20140624, end: 201505
  41. NORVIR [Concomitant]
     Active Substance: RITONAVIR
     Dosage: UNK
     Route: 065
     Dates: start: 201505, end: 201601
  42. NORVIR [Concomitant]
     Active Substance: RITONAVIR
     Dosage: UNK
     Route: 065
     Dates: start: 20160105, end: 201608
  43. PREZCOBIX [Concomitant]
     Active Substance: COBICISTAT\DARUNAVIR ETHANOLATE
     Indication: HIV infection
     Dosage: UNK
     Route: 065
     Dates: start: 201608
  44. PREZISTA [Concomitant]
     Active Substance: DARUNAVIR ETHANOLATE
     Indication: HIV infection
     Dosage: UNK
     Route: 065
     Dates: start: 20150624
  45. PREZISTA [Concomitant]
     Active Substance: DARUNAVIR ETHANOLATE
     Dosage: UNK
     Route: 065
     Dates: start: 201505, end: 201601
  46. PREZISTA [Concomitant]
     Active Substance: DARUNAVIR ETHANOLATE
     Dosage: UNK
     Route: 065
     Dates: start: 201601, end: 201608
  47. RETROVIR [Concomitant]
     Active Substance: ZIDOVUDINE
     Indication: HIV infection
     Dosage: UNK
     Route: 065
     Dates: start: 1988, end: 1991
  48. VIDEX [Concomitant]
     Active Substance: DIDANOSINE
     Indication: HIV infection
     Dosage: UNK
     Route: 065
     Dates: start: 1991, end: 1991
  49. ZIAGEN [Concomitant]
     Active Substance: ABACAVIR SULFATE
     Dosage: UNK
     Route: 065
     Dates: start: 1988, end: 1991
  50. ZERIT [Concomitant]
     Active Substance: STAVUDINE
     Indication: HIV infection
     Dosage: UNK
     Route: 065
     Dates: start: 1992, end: 1994
  51. AMOXICILLIN [Concomitant]
     Active Substance: AMOXICILLIN
  52. DICYCLOMINE [Concomitant]
     Active Substance: DICYCLOMINE HYDROCHLORIDE
  53. ALBUTEROL [Concomitant]
     Active Substance: ALBUTEROL
  54. ANDROGEL [Concomitant]
     Active Substance: TESTOSTERONE
  55. AZITHROMYCIN [Concomitant]
     Active Substance: AZITHROMYCIN
  56. BANOPHEN [Concomitant]
     Active Substance: DIPHENHYDRAMINE HYDROCHLORIDE
  57. BENZONATATE [Concomitant]
     Active Substance: BENZONATATE
  58. BUSPIRONE [Concomitant]
     Active Substance: BUSPIRONE HYDROCHLORIDE
  59. CEPHALEXIN [Concomitant]
     Active Substance: CEPHALEXIN
  60. CIPROFLOXACIN [Concomitant]
     Active Substance: CIPROFLOXACIN
  61. CLOTRIMAZOLE [Concomitant]
     Active Substance: CLOTRIMAZOLE
  62. DESMOPRESSIN [Concomitant]
     Active Substance: DESMOPRESSIN
  63. DICYCLOMINE HYDROCHLORIDE [Concomitant]
     Active Substance: DICYCLOMINE HYDROCHLORIDE
  64. DILAUDID [Concomitant]
     Active Substance: HYDROMORPHONE HYDROCHLORIDE
  65. DOXYCYCLINE [Concomitant]
     Active Substance: DOXYCYCLINE
  66. GABAPENTIN [Concomitant]
     Active Substance: GABAPENTIN
  67. IMIQUIMOD [Concomitant]
     Active Substance: IMIQUIMOD
  68. KADIAN [Concomitant]
     Active Substance: MORPHINE SULFATE
  69. LAMIVUDINE [Concomitant]
     Active Substance: LAMIVUDINE
  70. LAMOTRIGINE [Concomitant]
     Active Substance: LAMOTRIGINE
  71. METRONIDAZOLE [Concomitant]
     Active Substance: METRONIDAZOLE
  72. MORPHINE [Concomitant]
     Active Substance: MORPHINE
  73. MS CONTIN [Concomitant]
     Active Substance: MORPHINE SULFATE
  74. NAPROXEN [Concomitant]
     Active Substance: NAPROXEN
  75. NARCAN [Concomitant]
     Active Substance: NALOXONE HYDROCHLORIDE
  76. ONDANSETRON [Concomitant]
     Active Substance: ONDANSETRON
  77. ZOLPIDEM [Concomitant]
     Active Substance: ZOLPIDEM TARTRATE
  78. RANITIDINE [Concomitant]
     Active Substance: RANITIDINE
  79. VALIUM [Concomitant]
     Active Substance: DIAZEPAM
  80. LISINOPRIL [Concomitant]
     Active Substance: LISINOPRIL
  81. CELEBREX [Concomitant]
     Active Substance: CELECOXIB
  82. FLEET ENEMA [Concomitant]
     Active Substance: SODIUM PHOSPHATE, DIBASIC\SODIUM PHOSPHATE, MONOBASIC
  83. MORNIFLUMATE [Concomitant]
     Active Substance: MORNIFLUMATE

REACTIONS (15)
  - Multiple fractures [Unknown]
  - Foot fracture [Recovered/Resolved]
  - Rib fracture [Not Recovered/Not Resolved]
  - Hand fracture [Recovered/Resolved]
  - Rib fracture [Recovered/Resolved]
  - Hand fracture [Not Recovered/Not Resolved]
  - Renal tubular dysfunction [Unknown]
  - Osteoporosis [Unknown]
  - Renal impairment [Not Recovered/Not Resolved]
  - Renal failure [Unknown]
  - Musculoskeletal chest pain [Unknown]
  - Off label use [Recovered/Resolved]
  - Gait disturbance [Not Recovered/Not Resolved]
  - Osteopenia [Not Recovered/Not Resolved]
  - Bone density decreased [Unknown]

NARRATIVE: CASE EVENT DATE: 20080604
